FAERS Safety Report 24653874 (Version 1)
Quarter: 2024Q4

REPORT INFORMATION
  Report Type: Spontaneous
  Country: US (occurrence: US)
  Receive Date: 20241122
  Receipt Date: 20241122
  Transmission Date: 20250115
  Serious: No
  Sender: CALLIDITAS THERAPEUTICS AB
  Company Number: US-Calliditas-2024CAL02559

PATIENT
  Age: 39 Year
  Sex: Male

DRUGS (5)
  1. TARPEYO [Suspect]
     Active Substance: BUDESONIDE
     Indication: Haematuria
     Dosage: TAKE 4 CAPSULES BY MOUTH ONCE DAILY.
     Route: 048
     Dates: start: 202410
  2. FILSPARI [Concomitant]
     Active Substance: SPARSENTAN
  3. AMLODIPINE [Concomitant]
     Active Substance: AMLODIPINE BESYLATE
  4. KERENDIA [Concomitant]
     Active Substance: FINERENONE
  5. CALCIUM [Concomitant]
     Active Substance: CALCIUM

REACTIONS (2)
  - Acne [Not Recovered/Not Resolved]
  - Off label use [Unknown]
